FAERS Safety Report 6010818-X (Version None)
Quarter: 2008Q4

REPORT INFORMATION
  Report Type: 
  Country: None (occurrence: None)
  Receive Date: 20081218
  Receipt Date: 20081209
  Transmission Date: 20090506
  Serious: Yes (Other)
  Sender: FDA-Public Use
  Company Number: PHHY2008BR31601

PATIENT

DRUGS (2)
  1. FORASEQ [Suspect]
     Indication: BRONCHITIS
     Dosage: UNK
  2. FORASEQ [Suspect]
     Dosage: UNK

REACTIONS (4)
  - FORMICATION [None]
  - HAEMATOMA [None]
  - RASH PRURITIC [None]
  - SWELLING FACE [None]
